FAERS Safety Report 22222271 (Version 1)
Quarter: 2023Q2

REPORT INFORMATION
  Report Type: Other
  Country: DE (occurrence: DE)
  Receive Date: 20230418
  Receipt Date: 20230418
  Transmission Date: 20230722
  Serious: Yes (Other)
  Sender: FDA-Public Use
  Company Number: DE-DENTSPLY-2023SCDP000111

PATIENT
  Sex: Male

DRUGS (1)
  1. LIDOCAINE\PRILOCAINE [Suspect]
     Active Substance: LIDOCAINE\PRILOCAINE
     Indication: Dental care
     Dosage: UNK

REACTIONS (2)
  - Hallucination, auditory [Unknown]
  - Charles Bonnet syndrome [Unknown]
